FAERS Safety Report 20783246 (Version 1)
Quarter: 2022Q2

REPORT INFORMATION
  Report Type: Spontaneous
  Country: US (occurrence: US)
  Receive Date: 20220504
  Receipt Date: 20220504
  Transmission Date: 20220721
  Serious: No
  Sender: FDA-Public Use
  Company Number: US-BAYER-2022A063390

PATIENT
  Age: 59 Year
  Sex: Male
  Weight: 103.4 kg

DRUGS (6)
  1. ADEMPAS [Interacting]
     Active Substance: RIOCIGUAT
     Dosage: UNK
  2. REMODULIN [Suspect]
     Active Substance: TREPROSTINIL
     Indication: Pulmonary arterial hypertension
     Dosage: UNK
     Dates: start: 20110412
  3. REMODULIN [Suspect]
     Active Substance: TREPROSTINIL
     Indication: Pulmonary arterial hypertension
     Dosage: 0.11 ?G/KG, CONT
     Route: 042
  4. WARFARIN SODIUM [Concomitant]
     Active Substance: WARFARIN SODIUM
     Dosage: UNK
  5. BOSENTAN [Concomitant]
     Active Substance: BOSENTAN
     Dosage: UNK
  6. TADALAFIL [Interacting]
     Active Substance: TADALAFIL
     Dosage: UNK

REACTIONS (4)
  - Malaise [Not Recovered/Not Resolved]
  - Dizziness [Not Recovered/Not Resolved]
  - Nausea [Not Recovered/Not Resolved]
  - Labelled drug-drug interaction medication error [None]
